FAERS Safety Report 6083042-2 (Version None)
Quarter: 2009Q1

REPORT INFORMATION
  Report Type: 
  Country: None (occurrence: None)
  Receive Date: 20090218
  Receipt Date: 20090205
  Transmission Date: 20090719
  Serious: Yes (Death, Hospitalization)
  Sender: FDA-Public Use
  Company Number: JP-ABBOTT-08P-087-0495241-00

PATIENT
  Age: 76 Year
  Sex: Male
  Weight: 43 kg

DRUGS (20)
  1. LEUPROLIDE ACETATE [Suspect]
     Indication: PROSTATE CANCER STAGE II
     Route: 058
     Dates: start: 20060928, end: 20080214
  2. LEUPROLIDE ACETATE [Suspect]
     Route: 058
     Dates: start: 20060803, end: 20060831
  3. LEUPROLIDE ACETATE [Suspect]
     Indication: PROSTATE CANCER STAGE II
     Dates: start: 20060803, end: 20060831
  4. CASODEX [Concomitant]
     Indication: PROSTATE CANCER STAGE II
     Route: 048
  5. HALCION [Concomitant]
     Indication: DRUG USE FOR UNKNOWN INDICATION
     Route: 048
     Dates: start: 20060608, end: 20080318
  6. NITOROL [Concomitant]
     Indication: DRUG USE FOR UNKNOWN INDICATION
     Route: 048
  7. HERBESSER [Concomitant]
     Indication: DRUG USE FOR UNKNOWN INDICATION
     Route: 048
     Dates: end: 20080318
  8. AMLODIN [Concomitant]
     Indication: DRUG USE FOR UNKNOWN INDICATION
     Route: 048
     Dates: end: 20080318
  9. DIGOXIN [Concomitant]
     Indication: DRUG USE FOR UNKNOWN INDICATION
     Route: 048
     Dates: end: 20070426
  10. SIGMART [Concomitant]
     Indication: DRUG USE FOR UNKNOWN INDICATION
     Route: 048
     Dates: end: 20080318
  11. GASTROM [Concomitant]
     Indication: DRUG USE FOR UNKNOWN INDICATION
     Route: 048
     Dates: end: 20080318
  12. FRANDOL [Concomitant]
     Indication: DRUG USE FOR UNKNOWN INDICATION
     Dosage: TAPE
     Route: 062
  13. FRANDOL [Concomitant]
     Indication: ANGINA PECTORIS
     Route: 048
     Dates: start: 20070329, end: 20080318
  14. LAC B [Concomitant]
     Indication: CONSTIPATION
     Route: 048
     Dates: start: 20070329, end: 20080318
  15. TOUGHMAC E [Concomitant]
     Indication: GASTRITIS
     Route: 048
     Dates: start: 20070329, end: 20080318
  16. WARFARIN POTASSIUM [Concomitant]
     Indication: ARRHYTHMIA
     Route: 048
     Dates: start: 20070329, end: 20080318
  17. LOXONIN [Concomitant]
     Indication: BACK PAIN
     Route: 048
     Dates: start: 20070403, end: 20080318
  18. MARZULENE S [Concomitant]
     Indication: GASTRITIS PROPHYLAXIS
     Route: 048
     Dates: start: 20070403, end: 20080318
  19. MOHRUS [Concomitant]
     Indication: BACK PAIN
     Route: 062
     Dates: start: 20070403, end: 20080318
  20. VESICARE [Concomitant]
     Indication: HYPERTONIC BLADDER
     Route: 048
     Dates: start: 20070315, end: 20080318

REACTIONS (3)
  - CARDIO-RESPIRATORY ARREST [None]
  - LUNG NEOPLASM MALIGNANT [None]
  - PNEUMONIA [None]
